FAERS Safety Report 7377782-2 (Version None)
Quarter: 2011Q1

REPORT INFORMATION
  Report Type: 
  Country: None (occurrence: None)
  Receive Date: 20110328
  Receipt Date: 20110317
  Transmission Date: 20110831
  Serious: Yes (Other)
  Sender: FDA-Public Use
  Company Number: US-JNJFOC-20110310099

PATIENT
  Sex: Male

DRUGS (2)
  1. CHILDREN'S ZYRTEC CHEWABLE [Suspect]
     Route: 048
  2. CHILDREN'S ZYRTEC CHEWABLE [Suspect]
     Indication: PRODUCT USED FOR UNKNOWN INDICATION
     Route: 048

REACTIONS (4)
  - DEPENDENCE [None]
  - PRODUCT QUALITY ISSUE [None]
  - ADVERSE DRUG REACTION [None]
  - PRURITUS GENERALISED [None]
